FAERS Safety Report 12946289 (Version 1)
Quarter: 2016Q4

REPORT INFORMATION
  Report Type: Spontaneous
  Country: FR (occurrence: FR)
  Receive Date: 20161115
  Receipt Date: 20161115
  Transmission Date: 20170207
  Serious: Yes (Hospitalization)
  Sender: FDA-Public Use
  Company Number: FR-009507513-1610FRA016649

PATIENT
  Age: 71 Year
  Sex: Female

DRUGS (2)
  1. KEYTRUDA [Suspect]
     Active Substance: PEMBROLIZUMAB
     Indication: METASTATIC MALIGNANT MELANOMA
     Dosage: 170 MG, Q3W (EVERY 21 DAYS)
     Route: 042
     Dates: start: 20160107, end: 20160422
  2. YERVOY [Suspect]
     Active Substance: IPILIMUMAB
     Indication: METASTATIC MALIGNANT MELANOMA
     Dosage: 250 MG, Q3W (EVERY 21 DAYS), STRENGTH: 5MG/ML
     Route: 042
     Dates: start: 20160525, end: 20160727

REACTIONS (2)
  - Blood corticotrophin decreased [Unknown]
  - Hypophysitis [Recovered/Resolved]

NARRATIVE: CASE EVENT DATE: 20160902
